FAERS Safety Report 14170342 (Version 4)
Quarter: 2018Q1

REPORT INFORMATION
  Report Type: Spontaneous
  Country: FR (occurrence: FR)
  Receive Date: 20171108
  Receipt Date: 20180104
  Transmission Date: 20180508
  Serious: Yes (Other)
  Sender: FDA-Public Use
  Company Number: FR-PFIZER INC-2017474865

PATIENT
  Age: 48 Year
  Sex: Male

DRUGS (1)
  1. SILDENAFIL PFIZER [Suspect]
     Active Substance: SILDENAFIL
     Indication: ERECTILE DYSFUNCTION
     Dosage: 1 DF, AS NEEDED
     Route: 048
     Dates: start: 20170822, end: 201709

REACTIONS (4)
  - Paralysis [Recovered/Resolved]
  - Penile haemorrhage [Recovered/Resolved]
  - Drug ineffective [Recovered/Resolved]
  - Scrotal haematocoele [Recovered/Resolved]

NARRATIVE: CASE EVENT DATE: 20170822
